FAERS Safety Report 10777212 (Version 2)
Quarter: 2015Q3

REPORT INFORMATION
  Report Type: Spontaneous
  Country: FR (occurrence: FR)
  Receive Date: 20150209
  Receipt Date: 20150907
  Transmission Date: 20151125
  Serious: Yes (Death, Other)
  Sender: FDA-Public Use
  Company Number: PHHY2015FR014992

PATIENT
  Age: 94 Year
  Sex: Female

DRUGS (4)
  1. ONBREZ [Suspect]
     Active Substance: INDACATEROL
     Indication: COUGH
     Dosage: UNK
     Route: 055
     Dates: start: 20150109
  2. SEEBRI BREEZHALER [Suspect]
     Active Substance: GLYCOPYRROLATE
     Indication: COUGH
     Dosage: UNK
     Route: 055
     Dates: start: 20150109
  3. SEEBRI BREEZHALER [Suspect]
     Active Substance: GLYCOPYRROLATE
     Indication: DYSPNOEA
     Dosage: 1 DF, QD
     Route: 055
     Dates: start: 20141203, end: 201412
  4. ONBREZ [Suspect]
     Active Substance: INDACATEROL
     Indication: DYSPNOEA
     Dosage: 1 DF, QD
     Route: 055
     Dates: start: 20141203, end: 201412

REACTIONS (8)
  - Diarrhoea [Fatal]
  - Feeling abnormal [Fatal]
  - Cough [Recovered/Resolved]
  - Gastroenteritis [Fatal]
  - Drug intolerance [Unknown]
  - Dyspnoea [Unknown]
  - Cough [Unknown]
  - Off label use [Unknown]

NARRATIVE: CASE EVENT DATE: 201412
